FAERS Safety Report 9555042 (Version 1)
Quarter: 2013Q3

REPORT INFORMATION
  Report Type: Spontaneous
  Country: US (occurrence: None)
  Receive Date: 20130724
  Receipt Date: 20130724
  Transmission Date: 20140515
  Serious: No
  Sender: FDA-Public Use
  Company Number: PHEH2013US006114

PATIENT
  Sex: Female
  Weight: 52.6 kg

DRUGS (11)
  1. GILENYA (FINGOLIMOD) CAPSULE, 0.5MG [Suspect]
     Route: 048
  2. METHSCOPOLAMINE BROMIDE (HYOSCINE METHOBROMIDE) [Concomitant]
  3. OMEPRAZOLE (OMEPRAZOLE) [Concomitant]
  4. ALIGN (BIFIDOBACTERIUM INFANTIS) [Concomitant]
  5. REQUIP (ROPINIROLE HYDROCHLORIDE) [Concomitant]
  6. ZOLPIDEM (ZOLPIDEM) [Concomitant]
  7. ALPRAZOLAM (ALPRAZOLAM) [Concomitant]
  8. CALCIUM + VIT D (CALCIUM CARBONATE, VITAMIN D NOS) [Concomitant]
  9. FISH OIL (FISH OIL) [Concomitant]
  10. MULTIVITAMINS (ASCORBIC ACID, ERGOCALCIFEROL, FOLIC ACID, NICOTINAMIDE, PANTHENOL, RETINOL, RIBOFLAVIN, THIAMINE HYDROCHLORIDE) [Concomitant]
  11. CLOBETASOL (CLOBETASOL PROPIONATE) [Concomitant]

REACTIONS (2)
  - Pain [None]
  - Back pain [None]
